FAERS Safety Report 6571359-4 (Version None)
Quarter: 2010Q1

REPORT INFORMATION
  Report Type: 
  Country: None (occurrence: None)
  Receive Date: 20100205
  Receipt Date: 20100129
  Transmission Date: 20100710
  Serious: Yes (Hospitalization, Other)
  Sender: FDA-Public Use
  Company Number: US-BIOGENIDEC-2009BI025611

PATIENT
  Sex: Female

DRUGS (2)
  1. AVONEX [Suspect]
     Indication: MULTIPLE SCLEROSIS
     Route: 030
     Dates: start: 20081219
  2. AVONEX [Suspect]
     Route: 030
     Dates: start: 20090706

REACTIONS (3)
  - HERNIA [None]
  - INFECTION [None]
  - POST PROCEDURAL COMPLICATION [None]
